FAERS Safety Report 18832768 (Version 1)
Quarter: 2021Q1

REPORT INFORMATION
  Report Type: Report from Study
  Country: None (occurrence: DE)
  Receive Date: 20210201
  Receipt Date: 20210201
  Transmission Date: 20210419
  Serious: Yes (Life-Threatening, Hospitalization)
  Sender: FDA-Public Use
  Company Number: DE-ABBVIE-21K-062-3752595-00

PATIENT
  Age: 55 Year
  Sex: Male
  Weight: 68 kg

DRUGS (3)
  1. VIEKIRAX [Suspect]
     Active Substance: OMBITASVIR\PARITAPREVIR\RITONAVIR
     Indication: CHRONIC HEPATITIS C
     Dosage: OMBITASVIR 12.5MG/PARITAPREVIR 75 MG/RITONAVIR 50 MG, 2 TABLETS ONCE DAILY
     Route: 048
     Dates: start: 20160801, end: 20161023
  2. NEBIDO [Concomitant]
     Active Substance: TESTOSTERONE UNDECANOATE
     Indication: PRODUCT USED FOR UNKNOWN INDICATION
     Dates: start: 20101209
  3. COPEGUS [Concomitant]
     Active Substance: RIBAVIRIN
     Indication: CHRONIC HEPATITIS C
     Route: 048
     Dates: start: 20160801, end: 20161023

REACTIONS (3)
  - Klebsiella infection [Unknown]
  - Bile duct stone [Unknown]
  - Liver abscess [Recovering/Resolving]

NARRATIVE: CASE EVENT DATE: 202003
